FAERS Safety Report 23733271 (Version 1)
Quarter: 2024Q2

REPORT INFORMATION
  Report Type: Spontaneous
  Country: SK (occurrence: SK)
  Receive Date: 20240411
  Receipt Date: 20240411
  Transmission Date: 20240716
  Serious: Yes (Hospitalization, Other)
  Sender: FDA-Public Use
  Company Number: SK-SA-SAC20240401000313

PATIENT
  Age: 41 Year
  Sex: Female

DRUGS (3)
  1. METHYLPREDNISOLONE SODIUM SUCCINATE [Suspect]
     Active Substance: METHYLPREDNISOLONE SODIUM SUCCINATE
     Dosage: 1 G EVERY OTHER WEEK (QOW)
     Route: 042
  2. AUBAGIO [Suspect]
     Active Substance: TERIFLUNOMIDE
     Indication: Multiple sclerosis
     Dosage: UNK
     Route: 048
     Dates: start: 202308, end: 202403
  3. COPAXONE [Suspect]
     Active Substance: GLATIRAMER ACETATE
     Dosage: UNK
     Dates: end: 202403

REACTIONS (13)
  - Expanded disability status scale score increased [Unknown]
  - Central nervous system lesion [Unknown]
  - Deafness [Unknown]
  - Altered state of consciousness [Unknown]
  - Encephalitis herpes [Unknown]
  - Paraesthesia [Unknown]
  - Paraesthesia oral [Unknown]
  - Head discomfort [Unknown]
  - Tinnitus [Unknown]
  - Gait disturbance [Unknown]
  - Dizziness [Unknown]
  - Nausea [Unknown]
  - Drug ineffective [Unknown]

NARRATIVE: CASE EVENT DATE: 20240304
